FAERS Safety Report 7272562-0 (Version None)
Quarter: 2011Q1

REPORT INFORMATION
  Report Type: 
  Country: None (occurrence: None)
  Receive Date: 20110203
  Receipt Date: 20110126
  Transmission Date: 20110831
  Serious: Yes (Hospitalization)
  Sender: FDA-Public Use
  Company Number: DE-ROCHE-756619

PATIENT
  Sex: Female
  Weight: 52 kg

DRUGS (2)
  1. HERCEPTIN [Suspect]
     Route: 042
     Dates: start: 20100218
  2. HERCEPTIN [Suspect]
     Route: 042

REACTIONS (2)
  - SUBILEUS [None]
  - NEOPLASM SKIN [None]
